FAERS Safety Report 12585899 (Version 1)
Quarter: 2016Q3

REPORT INFORMATION
  Report Type: Spontaneous
  Country: US (occurrence: US)
  Receive Date: 20160725
  Receipt Date: 20160725
  Transmission Date: 20161109
  Serious: No
  Sender: FDA-Public Use
  Company Number: US-ASTRAZENECA-2016SE71944

PATIENT
  Sex: Female
  Weight: 61.2 kg

DRUGS (5)
  1. NIASPAN [Concomitant]
     Active Substance: NIACIN
     Indication: BLOOD CHOLESTEROL ABNORMAL
     Route: 048
     Dates: start: 2001
  2. AGGRENOX [Concomitant]
     Active Substance: ASPIRIN\DIPYRIDAMOLE
     Indication: ANTICOAGULANT THERAPY
     Dosage: 25 200 TWICE A DAY
     Route: 048
     Dates: start: 2001
  3. WELCHOL [Concomitant]
     Active Substance: COLESEVELAM HYDROCHLORIDE
     Indication: BLOOD CHOLESTEROL ABNORMAL
     Route: 048
     Dates: start: 2001
  4. ZETIA [Concomitant]
     Active Substance: EZETIMIBE
     Indication: BLOOD CHOLESTEROL ABNORMAL
     Route: 048
     Dates: start: 2001
  5. CRESTOR [Suspect]
     Active Substance: ROSUVASTATIN CALCIUM
     Indication: BLOOD CHOLESTEROL ABNORMAL
     Route: 048

REACTIONS (2)
  - Body height decreased [Unknown]
  - Myalgia [Unknown]
